FAERS Safety Report 7151996-9 (Version None)
Quarter: 2010Q4

REPORT INFORMATION
  Report Type: 
  Country: None (occurrence: None)
  Receive Date: 20101211
  Receipt Date: 20101202
  Transmission Date: 20110411
  Serious: Yes (Hospitalization, Other)
  Sender: FDA-Public Use
  Company Number: JP-PFIZER INC-2010153954

PATIENT
  Age: 84 Year
  Sex: Female
  Weight: 37 kg

DRUGS (18)
  1. LYRICA [Suspect]
     Indication: POST HERPETIC NEURALGIA
     Dosage: 25 MG, 2X/DAY
     Route: 048
     Dates: start: 20101009, end: 20101113
  2. NU LOTAN [Concomitant]
     Dosage: 12.5 MG, 1X/DAY
     Route: 048
  3. TENORMIN [Concomitant]
     Dosage: UNK
  4. ASPIRIN [Concomitant]
     Dosage: 100 MG, A DAY
     Route: 048
  5. SIGMART [Concomitant]
     Dosage: 2.5 MG, 2X/DAY, AFTER BREAKFAST AND DINNER
     Route: 048
  6. PLAVIX [Concomitant]
     Dosage: UNK
  7. PANALDINE [Concomitant]
     Dosage: 100 MG, 1X/DAY
     Route: 048
  8. MEVALOTIN [Concomitant]
     Dosage: 5 MG, 1X/DAY
     Route: 048
  9. ALLELOCK [Concomitant]
     Dosage: 5 MG, 1X/DAY
     Route: 048
     Dates: start: 20101018, end: 20101101
  10. DIART [Concomitant]
     Dosage: 15 MG, A DAY
     Route: 048
  11. ALDACTONE [Concomitant]
     Dosage: 12.5 MG, 1X/DAY, AFTER BREAKFAST
     Route: 048
  12. LOPRESSOR [Concomitant]
     Dosage: 10 MG, 2X/DAY, AFTER BREAKFAST AND DINNER
     Route: 048
  13. WARFARIN [Concomitant]
     Dosage: 1.5 MG, 1X/DAY
     Route: 048
  14. OMEPRAL [Concomitant]
     Dosage: 10 MG, 1X/DAY
     Route: 048
  15. CALONAL [Concomitant]
     Dosage: 100 MG, 2X/DAY AFTER BREAKFAST AND DINNER
     Route: 048
  16. LIDOCAINE [Concomitant]
     Dosage: UNK
     Route: 062
  17. RESLIN [Concomitant]
     Dosage: 25 MG, 1X/DAY, BEFORE GOING TO BE
     Route: 048
  18. CODEINE PHOSPHATE [Concomitant]
     Dosage: 2 G, 3X/DAY, AFTER BREAKFAST, LUNCH, AND DINNER
     Route: 048

REACTIONS (1)
  - CARDIAC FAILURE CHRONIC [None]
